FAERS Safety Report 12670790 (Version 4)
Quarter: 2016Q3

REPORT INFORMATION
  Report Type: Spontaneous
  Country: US (occurrence: US)
  Receive Date: 20160822
  Receipt Date: 20160919
  Transmission Date: 20161109
  Serious: Yes (Death, Other)
  Sender: FDA-Public Use
  Company Number: PHEH2016US020951

PATIENT
  Age: 92 Year
  Sex: Female

DRUGS (2)
  1. ARIMIDEX [Suspect]
     Active Substance: ANASTROZOLE
     Indication: BREAST CANCER METASTATIC
     Route: 065
  2. TYKERB [Suspect]
     Active Substance: LAPATINIB DITOSYLATE
     Indication: BREAST CANCER METASTATIC
     Dosage: 6 DF, QD
     Route: 048
     Dates: start: 20160810

REACTIONS (14)
  - Rash macular [Recovering/Resolving]
  - Rash [Recovering/Resolving]
  - Metastases to liver [Unknown]
  - Joint swelling [Unknown]
  - Pruritus [Recovering/Resolving]
  - Death [Fatal]
  - Fatigue [Unknown]
  - Diarrhoea [Unknown]
  - Insomnia [Recovered/Resolved]
  - Erythema [Recovering/Resolving]
  - Jaundice [Unknown]
  - Yellow skin [Unknown]
  - Asthenia [Recovering/Resolving]
  - Rash pruritic [Recovering/Resolving]

NARRATIVE: CASE EVENT DATE: 20160814
